FAERS Safety Report 15179754 (Version 2)
Quarter: 2018Q3

REPORT INFORMATION
  Report Type: Spontaneous
  Country: BR (occurrence: BR)
  Receive Date: 20180723
  Receipt Date: 20180829
  Transmission Date: 20181010
  Serious: Yes (Other)
  Sender: FDA-Public Use
  Company Number: BR-ROCHE-2156382

PATIENT
  Age: 42 Year
  Sex: Female

DRUGS (7)
  1. QUETROS [Concomitant]
     Active Substance: QUETIAPINE
     Route: 065
     Dates: start: 2015
  2. RIVOTRIL [Suspect]
     Active Substance: CLONAZEPAM
     Route: 065
     Dates: end: 2015
  3. EFFEXOR XR [Suspect]
     Active Substance: VENLAFAXINE HYDROCHLORIDE
     Indication: ANXIETY
     Route: 065
  4. EFFEXOR XR [Suspect]
     Active Substance: VENLAFAXINE HYDROCHLORIDE
     Route: 065
     Dates: start: 2015
  5. RIVOTRIL [Suspect]
     Active Substance: CLONAZEPAM
     Indication: PARKINSON^S DISEASE
     Route: 065
     Dates: start: 2015, end: 201801
  6. EFFEXOR XR [Suspect]
     Active Substance: VENLAFAXINE HYDROCHLORIDE
     Indication: DEPRESSION
     Dosage: FOR 9 MONTHS
     Route: 065
     Dates: start: 2015
  7. VENLAFAXINE HYDROCHLORIDE. [Concomitant]
     Active Substance: VENLAFAXINE HYDROCHLORIDE

REACTIONS (22)
  - Paraesthesia oral [Recovered/Resolved]
  - Intentional product misuse [Unknown]
  - Nightmare [Recovered/Resolved]
  - Diarrhoea [Unknown]
  - Speech disorder [Recovered/Resolved]
  - Therapy cessation [Unknown]
  - Dizziness [Recovered/Resolved]
  - Feeding disorder [Recovered/Resolved]
  - Eye disorder [Unknown]
  - Tremor [Unknown]
  - Vomiting [Unknown]
  - Memory impairment [Unknown]
  - Anger [Recovered/Resolved]
  - Head discomfort [Recovered/Resolved]
  - Hyperhidrosis [Recovered/Resolved]
  - Tongue disorder [Recovered/Resolved]
  - Malaise [Unknown]
  - Feeling abnormal [Recovered/Resolved]
  - Fall [Unknown]
  - Hallucination, visual [Unknown]
  - Disturbance in attention [Unknown]
  - Asthenia [Unknown]

NARRATIVE: CASE EVENT DATE: 201603
